FAERS Safety Report 7867082-6 (Version None)
Quarter: 2011Q4

REPORT INFORMATION
  Report Type: 
  Country: None (occurrence: None)
  Receive Date: 20111028
  Receipt Date: 20111018
  Transmission Date: 20120403
  Serious: Yes (Hospitalization, Other)
  Sender: FDA-Public Use
  Company Number: US-BAYER-2011-006186

PATIENT
  Age: 40 Year
  Sex: Female

DRUGS (11)
  1. DROSPIRENONE AND ETHINYL ESTRADIOL [Suspect]
     Dosage: UNK
     Dates: start: 19950101, end: 20050101
  2. DROSPIRENONE AND ETHINYL ESTRADIOL [Suspect]
     Indication: ACNE
     Dosage: UNK
     Dates: start: 19950101, end: 20060101
  3. DROSPIRENONE AND ETHINYL ESTRADIOL [Suspect]
     Dosage: UNK
     Dates: start: 20050101
  4. ALBUTEROL [Concomitant]
  5. YASMIN [Suspect]
     Dosage: UNK
     Dates: start: 19950101, end: 20050101
  6. SYNTHROID [Concomitant]
  7. YASMIN [Suspect]
     Indication: ACNE
     Dosage: UNK
     Dates: start: 19950101, end: 20060101
  8. ADVAIR DISKUS 100/50 [Concomitant]
  9. YAZ [Suspect]
     Indication: ACNE
     Dosage: UNK
     Dates: start: 19950101, end: 20060101
  10. YAZ [Suspect]
     Dosage: UNK
     Dates: start: 19960101, end: 20070101
  11. YASMIN [Suspect]
     Dosage: UNK
     Dates: start: 20050101

REACTIONS (9)
  - MENTAL DISORDER [None]
  - SYNCOPE [None]
  - CARDIAC VALVE DISEASE [None]
  - PULMONARY EMBOLISM [None]
  - PAIN [None]
  - ANXIETY [None]
  - AORTIC VALVE INCOMPETENCE [None]
  - EMOTIONAL DISTRESS [None]
  - INJURY [None]
